FAERS Safety Report 4360044-5 (Version None)
Quarter: 2004Q2

REPORT INFORMATION
  Report Type: 
  Country: None (occurrence: None)
  Receive Date: 20040513
  Receipt Date: 20040506
  Transmission Date: 20050107
  Serious: Yes (Hospitalization)
  Sender: FDA-Public Use
  Company Number: 200411615GDS

PATIENT
  Age: 82 Year
  Sex: Male

DRUGS (1)
  1. ADIRO 100 (ACETYLSALICYLIC ACID) [Suspect]
     Indication: CEREBROVASCULAR DISORDER
     Dosage: 200 MG, TOTAL DAILY, ORAL
     Route: 048
     Dates: start: 20020101, end: 20040525

REACTIONS (2)
  - GASTRIC ULCER HAEMORRHAGE [None]
  - HYPOTENSION [None]
